FAERS Safety Report 16503619 (Version 2)
Quarter: 2019Q3

REPORT INFORMATION
  Report Type: Spontaneous
  Country: US (occurrence: US)
  Receive Date: 20190701
  Receipt Date: 20190703
  Transmission Date: 20191004
  Serious: No
  Sender: FDA-Public Use
  Company Number: US-LUNDBECK-DKLU3000167

PATIENT
  Sex: Female

DRUGS (3)
  1. KLONOPIN [Suspect]
     Active Substance: CLONAZEPAM
     Indication: SEIZURE
     Route: 048
  2. ONFI [Suspect]
     Active Substance: CLOBAZAM
     Indication: SEIZURE
     Route: 048
     Dates: start: 201902
  3. ONFI [Suspect]
     Active Substance: CLOBAZAM
     Indication: GENERALISED TONIC-CLONIC SEIZURE
     Route: 065
     Dates: start: 20190224

REACTIONS (9)
  - Musculoskeletal pain [Unknown]
  - Oedema peripheral [Unknown]
  - Pruritus [Unknown]
  - Memory impairment [Unknown]
  - Dyspnoea [Unknown]
  - Heart rate increased [Unknown]
  - Condition aggravated [Unknown]
  - Arthralgia [Unknown]
  - Fatigue [Unknown]
